FAERS Safety Report 7670229-8 (Version None)
Quarter: 2011Q3

REPORT INFORMATION
  Report Type: 
  Country: None (occurrence: None)
  Receive Date: 20110808
  Receipt Date: 20110613
  Transmission Date: 20111222
  Serious: No
  Sender: FDA-Public Use
  Company Number: US-BAYER-2011-051339

PATIENT
  Age: 23 Year
  Sex: Female
  Weight: 97.506 kg

DRUGS (1)
  1. ALEVE (CAPLET) [Suspect]
     Indication: DYSMENORRHOEA
     Dosage: DAILY DOSE 6 DF
     Route: 048
     Dates: start: 20110613, end: 20110613

REACTIONS (3)
  - FLUSHING [None]
  - DIZZINESS [None]
  - FEELING HOT [None]
